FAERS Safety Report 7882843-5 (Version None)
Quarter: 2011Q4

REPORT INFORMATION
  Report Type: 
  Country: None (occurrence: None)
  Receive Date: 20111101
  Receipt Date: 20110621
  Transmission Date: 20120403
  Serious: No
  Sender: FDA-Public Use
  Company Number: US-AMGEN-USASP2011031640

PATIENT
  Age: 61 Year
  Sex: Female

DRUGS (5)
  1. EUCERIN [Concomitant]
     Dosage: UNK
  2. DILTIAZEM HCL [Concomitant]
     Dosage: 120 MG, UNK
  3. CALCIUM D [Concomitant]
     Dosage: UNK
  4. HYDROCHLOROTH [Concomitant]
     Dosage: 25 MG, UNK
  5. ENBREL [Suspect]
     Indication: PRODUCT USED FOR UNKNOWN INDICATION
     Dosage: 50 MG, QWK
     Route: 058

REACTIONS (1)
  - PAIN [None]
